FAERS Safety Report 9872154 (Version 2)
Quarter: 2014Q1

REPORT INFORMATION
  Report Type: Spontaneous
  Country: US (occurrence: US)
  Receive Date: 20140205
  Receipt Date: 20140205
  Transmission Date: 20141002
  Serious: No
  Sender: FDA-Public Use
  Company Number: US-ALLERGAN-1306605US

PATIENT
  Age: 6 Decade
  Sex: Female

DRUGS (2)
  1. BOTOX [Suspect]
     Indication: POLLAKIURIA
     Dosage: 200 UNITS, SINGLE
     Dates: start: 201304, end: 201304
  2. ANTI DEPRESSANT [Concomitant]
     Indication: PRODUCT USED FOR UNKNOWN INDICATION

REACTIONS (2)
  - Dysgeusia [Recovered/Resolved]
  - Dyspnoea [Recovered/Resolved]
